FAERS Safety Report 7335802-5 (Version None)
Quarter: 2011Q1

REPORT INFORMATION
  Report Type: 
  Country: None (occurrence: None)
  Receive Date: 20110307
  Receipt Date: 20110302
  Transmission Date: 20110831
  Serious: Yes (Death)
  Sender: FDA-Public Use
  Company Number: BD-ASTELLAS-2011US000862

PATIENT
  Age: 18 Year
  Sex: Male
  Weight: 30 kg

DRUGS (11)
  1. SALBUTAMOL [Concomitant]
     Indication: DYSPNOEA
     Dosage: 2 MG, TID
     Route: 048
     Dates: start: 20110227, end: 20110301
  2. MILTEFOSINE [Suspect]
     Indication: VISCERAL LEISHMANIASIS
     Dosage: 50 MG, BID
     Route: 048
     Dates: start: 20110227, end: 20110301
  3. DOMPERIDON [Concomitant]
     Indication: NAUSEA
     Dosage: 10 MG, UNKNOWN/D
     Route: 048
     Dates: start: 20110223, end: 20110301
  4. TRAMADOL HCL [Concomitant]
     Indication: CHEST PAIN
     Dosage: 100 MG, BID
     Route: 030
     Dates: start: 20110227, end: 20110227
  5. OMEPRAZOLE [Concomitant]
     Indication: DYSPEPSIA
     Dosage: 20 MG, BID
     Route: 048
     Dates: start: 20110223, end: 20110301
  6. AZITHROMYCIN [Concomitant]
     Indication: LOWER RESPIRATORY TRACT INFECTION
     Dosage: 500 MG, UNKNOWN/D
     Route: 048
     Dates: start: 20110228, end: 20110301
  7. AMBISOME [Suspect]
     Indication: VISCERAL LEISHMANIASIS
     Dosage: 160 MG, TOTAL DOSE
     Route: 042
     Dates: start: 20110226, end: 20110226
  8. PARACETAMOL [Concomitant]
     Indication: PYREXIA
     Dosage: 500 MG, PRN
     Route: 048
     Dates: start: 20110223, end: 20110301
  9. AMBROXOL HYDROCHLORIDE [Concomitant]
     Indication: COUGH
     Dosage: 10 ML, BID
     Route: 048
     Dates: start: 20110223, end: 20110228
  10. MILK OF MAGNESIA TAB [Concomitant]
     Indication: CONSTIPATION
     Dosage: 10 ML, UNKNOWN/D
     Route: 048
     Dates: start: 20110225, end: 20110225
  11. PARACETAMOL [Concomitant]
     Dosage: 500 MG, PRN
     Route: 054
     Dates: start: 20110224, end: 20110301

REACTIONS (3)
  - RESPIRATORY FAILURE [None]
  - CARDIAC FAILURE [None]
  - PNEUMONIA [None]
